FAERS Safety Report 6509657-2 (Version None)
Quarter: 2009Q4

REPORT INFORMATION
  Report Type: 
  Country: None (occurrence: None)
  Receive Date: 20091221
  Receipt Date: 20091221
  Transmission Date: 20100525
  Serious: Yes (Hospitalization)
  Sender: FDA-Public Use
  Company Number: None

PATIENT
  Sex: Female
  Weight: 100.91 kg

DRUGS (5)
  1. MEMANTINE HCL [Suspect]
     Dosage: 115 MG
  2. GLYBURIDE [Concomitant]
  3. NOVALOG [Concomitant]
  4. PRILOSEC [Concomitant]
  5. DEXAMETHASONE [Concomitant]

REACTIONS (1)
  - DELUSION [None]
